FAERS Safety Report 9052802 (Version 1)
Quarter: 2013Q1

REPORT INFORMATION
  Report Type: Report from Study
  Country: US (occurrence: US)
  Receive Date: 20130207
  Receipt Date: 20130207
  Transmission Date: 20140127
  Serious: Yes (Hospitalization, Other)
  Sender: FDA-Public Use
  Company Number: US-ABBOTT-13P-163-1039551-00

PATIENT
  Age: 30 None
  Sex: Female

DRUGS (13)
  1. HUMIRA [Suspect]
     Indication: RHEUMATOID ARTHRITIS
     Dosage: ONE SHOT TWICE A MONTH
     Dates: start: 20071125, end: 20071125
  2. PRENATAL VITAMINS [Concomitant]
     Indication: PRODUCT USED FOR UNKNOWN INDICATION
     Dosage: 1 PILL ONCE A DAY (KAISER BRAND)
     Route: 048
     Dates: start: 20080212, end: 20080707
  3. MULTIVITAMIN [Concomitant]
     Indication: VITAMIN SUPPLEMENTATION
     Dosage: 1 PILL ONCE A DAY
     Route: 048
     Dates: start: 20071211, end: 20080211
  4. FISH OIL [Concomitant]
     Indication: VITAMIN SUPPLEMENTATION
     Dosage: 1 PILL ONCE A DAY
     Route: 048
     Dates: start: 20080401, end: 20080707
  5. FOLIC ACID [Concomitant]
     Indication: VITAMIN SUPPLEMENTATION
     Dosage: 1 PILL ONCE A DAY
     Route: 048
     Dates: start: 20071211, end: 20080707
  6. CALCIUM [Concomitant]
     Indication: ARTHRITIS
     Route: 048
     Dates: start: 20071211, end: 20080707
  7. BODY BALANCE [Concomitant]
     Indication: PRODUCT USED FOR UNKNOWN INDICATION
     Route: 048
     Dates: start: 20071112, end: 20080707
  8. PREDNISONE [Concomitant]
     Indication: RHEUMATOID ARTHRITIS
     Route: 048
     Dates: start: 20071112, end: 20071231
  9. PREDNISONE [Concomitant]
     Route: 048
     Dates: start: 20080101, end: 20080131
  10. PREDNISONE [Concomitant]
     Route: 048
     Dates: start: 20080201, end: 20080707
  11. IMITREX [Concomitant]
     Indication: MIGRAINE
     Dosage: 1 PILL ONCE A DAY
     Route: 048
     Dates: start: 20071125, end: 20071125
  12. IMITREX [Concomitant]
     Dosage: 1 PILL ONCE A DAY
     Route: 048
     Dates: start: 20071129, end: 20071129
  13. IMITREX [Concomitant]
     Dosage: 1 PILL ONCE A DAY
     Route: 048
     Dates: start: 20071209, end: 20071209

REACTIONS (12)
  - Premature labour [Recovered/Resolved]
  - Kidney infection [Unknown]
  - Influenza [Unknown]
  - Pyrexia [Unknown]
  - Pyrexia [Recovered/Resolved]
  - Headache [Recovered/Resolved]
  - Headache [Recovered/Resolved]
  - Headache [Recovered/Resolved]
  - Headache [Recovered/Resolved]
  - Headache [Recovered/Resolved]
  - Headache [Recovered/Resolved]
  - Headache [Recovered/Resolved]
